APPROVED DRUG PRODUCT: NORCO
Active Ingredient: ACETAMINOPHEN; HYDROCODONE BITARTRATE
Strength: 325MG;7.5MG
Dosage Form/Route: TABLET;ORAL
Application: A040148 | Product #003
Applicant: ALLERGAN PHARMACEUTICALS INTERNATIONAL LTD
Approved: Sep 12, 2000 | RLD: No | RS: No | Type: DISCN